FAERS Safety Report 8560032 (Version 5)
Quarter: 2013Q4

REPORT INFORMATION
  Report Type: Report from Study
  Country: US (occurrence: US)
  Receive Date: 20120514
  Receipt Date: 20131203
  Transmission Date: 20140711
  Serious: Yes (Hospitalization)
  Sender: FDA-Public Use
  Company Number: PHEH2012US009894

PATIENT
  Sex: Female

DRUGS (14)
  1. GILENYA [Suspect]
     Indication: MULTIPLE SCLEROSIS
     Dosage: 0.5 MG, QD
     Route: 048
     Dates: start: 20111223, end: 20120117
  2. ASPIRIN [Concomitant]
     Dosage: 325 MG, QD
     Route: 048
  3. EVISTA [Concomitant]
     Indication: POSTMENOPAUSE
     Dosage: 60 MG, QD
     Route: 048
  4. NEURONTIN [Concomitant]
     Dosage: UNK UKN, UNK
  5. SYNTHROID [Concomitant]
     Indication: HYPOTHYROIDISM
     Dosage: 1.25 MG, QD
     Route: 048
  6. PRILOSEC [Concomitant]
     Indication: GASTROOESOPHAGEAL REFLUX DISEASE
     Dosage: 20 MG, BID
     Route: 048
  7. ULTRAM [Concomitant]
     Dosage: UNK UKN, UNK
  8. GABAPENTIN [Concomitant]
     Indication: MULTIPLE SCLEROSIS
     Dosage: 800 MG, TID
     Route: 048
  9. SINGULAIR [Concomitant]
     Indication: HYPERSENSITIVITY
     Dosage: 10 MG, QD
     Route: 048
  10. PRAVASTATIN [Concomitant]
     Indication: BLOOD CHOLESTEROL ABNORMAL
     Dosage: 40 MG, QD
     Route: 048
  11. LIDODERM [Concomitant]
     Indication: ARTHRALGIA
     Dosage: 5 %, Q12H
     Route: 062
  12. CALCIUM WITH VITAMIN D [Concomitant]
     Dosage: 600 MG, BID
     Route: 048
  13. BENADRYL [Concomitant]
     Indication: PRURITUS
     Dosage: 75 MG, QD
     Route: 048
  14. CENTRUM [Concomitant]
     Route: 048

REACTIONS (2)
  - Aortic valve incompetence [Recovering/Resolving]
  - Chest pain [Recovering/Resolving]
